FAERS Safety Report 8741853 (Version 2)
Quarter: 2012Q4

REPORT INFORMATION
  Report Type: 
  Country: US (occurrence: US)
  Receive Date: 20120824
  Receipt Date: 20120913
  Transmission Date: 20130627
  Serious: No
  Sender: FDA-Public Use
  Company Number: US-PFIZER INC-2012206744

PATIENT

DRUGS (2)
  1. XANAX [Suspect]
     Dosage: UNK
  2. PROZAC [Suspect]
     Dosage: UNK

REACTIONS (1)
  - Drug ineffective [Unknown]
